FAERS Safety Report 7452299-5 (Version None)
Quarter: 2011Q2

REPORT INFORMATION
  Report Type: 
  Country: None (occurrence: None)
  Receive Date: 20110502
  Receipt Date: 20110426
  Transmission Date: 20111010
  Serious: Yes (Other)
  Sender: FDA-Public Use
  Company Number: BR-PFIZER INC-2011085452

PATIENT
  Age: 31 Year
  Sex: Male
  Weight: 94 kg

DRUGS (1)
  1. LEPONEX ^NOVARTIS^ [Suspect]
     Indication: PSYCHOTIC DISORDER
     Dosage: 100 MG, 2X/DAY
     Dates: end: 20110412

REACTIONS (5)
  - PARANOIA [None]
  - DYSPEPSIA [None]
  - VOMITING [None]
  - WEIGHT INCREASED [None]
  - SALIVARY HYPERSECRETION [None]
